FAERS Safety Report 4262567-6 (Version None)
Quarter: 2004Q1

REPORT INFORMATION
  Report Type: 
  Country: None (occurrence: None)
  Receive Date: 20040102
  Receipt Date: 20031225
  Transmission Date: 20041129
  Serious: Yes (Life-Threatening, Hospitalization)
  Sender: FDA-Public Use
  Company Number: WAES 0312USA02557

PATIENT
  Age: 11 Year
  Sex: Male

DRUGS (5)
  1. AMINOPHYLLINE [Concomitant]
     Dates: start: 20031111, end: 20031112
  2. HYDROCORTISONE SODIUM SUCCINATE [Suspect]
     Dates: start: 20031111, end: 20031112
  3. SINGULAIR [Suspect]
     Route: 048
     Dates: start: 20031110, end: 20031120
  4. PROCATEROL HYDROCHLORIDE [Concomitant]
     Dates: start: 20031110, end: 20031112
  5. THEOPHYLLINE [Concomitant]
     Dates: start: 20031110, end: 20031112

REACTIONS (1)
  - INTERSTITIAL LUNG DISEASE [None]
